FAERS Safety Report 16788652 (Version 2)
Quarter: 2019Q3

REPORT INFORMATION
  Report Type: Spontaneous
  Country: ES (occurrence: ES)
  Receive Date: 20190910
  Receipt Date: 20190921
  Transmission Date: 20191005
  Serious: Yes (Other)
  Sender: FDA-Public Use
  Company Number: ES-JNJFOC-20190900992

PATIENT
  Age: 9 Month
  Sex: Male
  Weight: 9.6 kg

DRUGS (3)
  1. OMEPRAZOL                          /00661201/ [Suspect]
     Active Substance: OMEPRAZOLE
     Indication: GASTROOESOPHAGEAL REFLUX DISEASE
     Dosage: ADDITIONAL INFO: BATCH AND LOT TESTED AND FOUND NOT WITHIN SPECIFICATIONS?4 MG/12 HORAS, DRUG START
     Route: 048
     Dates: start: 20181217, end: 20190314
  2. OMEPRAZOL                          /00661201/ [Suspect]
     Active Substance: OMEPRAZOLE
     Dosage: ADDITIONAL INFO: BATCH AND LOT TESTED AND FOUND NOT WITHIN SPECIFICATIONS?8 MG/12 HORAS, DRUG START
     Route: 048
     Dates: start: 20190314, end: 20190410
  3. MINOXIDIL. [Suspect]
     Active Substance: MINOXIDIL
     Indication: PRODUCT USED FOR UNKNOWN INDICATION
     Dosage: BATCH AND LOT TESTED AND FOUND NOT WITHIN SPECIFICATIONS-THE DRUG ADMINISTERED WAS MINOXIDIL INSTEAD
     Route: 065
     Dates: start: 20181217

REACTIONS (2)
  - Hypertrichosis [Recovering/Resolving]
  - Product formulation issue [Recovered/Resolved]

NARRATIVE: CASE EVENT DATE: 2019
